FAERS Safety Report 7469456-4 (Version None)
Quarter: 2011Q2

REPORT INFORMATION
  Report Type: 
  Country: None (occurrence: None)
  Receive Date: 20110506
  Receipt Date: 20110506
  Transmission Date: 20111010
  Serious: Yes (Other)
  Sender: FDA-Public Use
  Company Number: None

PATIENT
  Age: 51 Year
  Sex: Female
  Weight: 56.246 kg

DRUGS (1)
  1. BUDESONIDE [Suspect]
     Route: 045

REACTIONS (3)
  - OESOPHAGEAL CANDIDIASIS [None]
  - HYPOGEUSIA [None]
  - ABDOMINAL PAIN UPPER [None]
